FAERS Safety Report 8895540 (Version 3)
Quarter: 2013Q2

REPORT INFORMATION
  Report Type: Report from Study
  Country: US (occurrence: US)
  Receive Date: 20121108
  Receipt Date: 20130503
  Transmission Date: 20140414
  Serious: Yes (Death, Life-Threatening, Hospitalization)
  Sender: FDA-Public Use
  Company Number: US-GLAXOSMITHKLINE-A1000204A

PATIENT
  Age: 62 Year
  Sex: Male
  Weight: 76 kg

DRUGS (28)
  1. ZOFRAN [Suspect]
     Indication: NAUSEA
     Dosage: 4MG AS REQUIRED
     Route: 048
  2. INVESTIGATIONAL STUDY DRUG [Suspect]
     Indication: ASPERGILLUS INFECTION
     Dates: start: 20120720
  3. TACROLIMUS [Concomitant]
  4. BUDESONIDE [Concomitant]
  5. SOLUMEDROL [Concomitant]
     Dates: start: 20120719
  6. CIDOFOVIR [Concomitant]
     Dates: start: 20120702
  7. PENTAMIDINE [Concomitant]
  8. ACYCLOVIR [Concomitant]
  9. LEVOFLOXACIN [Concomitant]
  10. SALBUTAMOL [Concomitant]
  11. FLUTICASONE PROPIONATE [Concomitant]
     Route: 055
  12. SUCRALFATE [Concomitant]
  13. OMEPRAZOLE [Concomitant]
  14. AMLODIPINE [Concomitant]
  15. CASPOFUNGIN ACETATE [Concomitant]
  16. ISOSORBIDE MONONITRATE [Concomitant]
  17. TRAZODONE HYDROCHLORIDE [Concomitant]
  18. HYDROMORPHONE HYDROCHLORIDE [Concomitant]
  19. METOPROLOL SUCCINATE [Concomitant]
  20. SERTRALINE HYDROCHLORIDE [Concomitant]
  21. INSULIN ASPART [Concomitant]
  22. AMLODIPINE BESILATE [Concomitant]
  23. METHYLPHENIDATE HYDROCHLORIDE [Concomitant]
  24. PENTAMIDINE ISETHIONATE [Concomitant]
     Route: 055
  25. FAT EMULSION [Concomitant]
  26. SIROLIMUS [Concomitant]
     Route: 048
     Dates: start: 20120807, end: 20121010
  27. DAPTOMYCIN [Concomitant]
  28. SERTRALINE [Concomitant]

REACTIONS (4)
  - Aspergillus infection [Not Recovered/Not Resolved]
  - Depressed level of consciousness [Recovered/Resolved]
  - Lethargy [Recovered/Resolved]
  - Respiratory failure [Fatal]
